FAERS Safety Report 7400925-9 (Version None)
Quarter: 2011Q2

REPORT INFORMATION
  Report Type: 
  Country: None (occurrence: None)
  Receive Date: 20110407
  Receipt Date: 20110329
  Transmission Date: 20111010
  Serious: Yes (Other)
  Sender: FDA-Public Use
  Company Number: US-CEPHALON-2011000825

PATIENT
  Sex: Male

DRUGS (2)
  1. ADDERALL 10 [Concomitant]
  2. PROVIGIL [Suspect]
     Route: 048

REACTIONS (2)
  - DENTAL CARIES [None]
  - TOOTH LOSS [None]
